FAERS Safety Report 10855559 (Version 1)
Quarter: 2015Q1

REPORT INFORMATION
  Report Type: Spontaneous
  Country: US (occurrence: None)
  Receive Date: 20150218
  Receipt Date: 20150218
  Transmission Date: 20150721
  Serious: Yes (Hospitalization, Other)
  Sender: FDA-Public Use
  Company Number: None

PATIENT
  Age: 45 Year
  Sex: Male
  Weight: 69 kg

DRUGS (1)
  1. VELPHORO [Suspect]
     Active Substance: FERRIC OXYHYDROXIDE
     Indication: BONE DISORDER
     Dosage: 1 WITH EVERY MEAL
     Route: 048
     Dates: start: 20141103, end: 20141205

REACTIONS (5)
  - Vomiting [None]
  - Diarrhoea [None]
  - Haematochezia [None]
  - Enterocolitis [None]
  - Haemoglobin decreased [None]

NARRATIVE: CASE EVENT DATE: 20141127
